FAERS Safety Report 22234972 (Version 1)
Quarter: 2023Q2

REPORT INFORMATION
  Report Type: Spontaneous
  Country: US (occurrence: None)
  Receive Date: 20230419
  Receipt Date: 20230419
  Transmission Date: 20230721
  Serious: Yes (Other)
  Sender: FDA-Public Use
  Company Number: None

PATIENT
  Age: 44 Year
  Sex: Female
  Weight: 92.1 kg

DRUGS (1)
  1. VIVITROL [Suspect]
     Active Substance: NALTREXONE
     Indication: Alcohol use disorder
     Dosage: OTHER FREQUENCY : EVERY 4 WEEKS;?
     Route: 030

REACTIONS (3)
  - Injection site swelling [None]
  - Injection site pruritus [None]
  - Peroneal nerve palsy [None]

NARRATIVE: CASE EVENT DATE: 20230413
